FAERS Safety Report 24836676 (Version 1)
Quarter: 2025Q1

REPORT INFORMATION
  Report Type: Spontaneous
  Country: CA (occurrence: CA)
  Receive Date: 20250113
  Receipt Date: 20250113
  Transmission Date: 20250408
  Serious: Yes (Other)
  Sender: FRESENIUS KABI
  Company Number: CA-FreseniusKabi-FK202500252

PATIENT
  Age: 36 Year
  Sex: Female

DRUGS (1)
  1. MAGNESIUM SULFATE [Suspect]
     Active Substance: MAGNESIUM SULFATE
     Indication: Product used for unknown indication

REACTIONS (3)
  - Blood pressure decreased [Recovered/Resolved]
  - Feeling hot [Recovered/Resolved]
  - Syncope [Recovered/Resolved]
